FAERS Safety Report 19006159 (Version 2)
Quarter: 2021Q1

REPORT INFORMATION
  Report Type: Spontaneous
  Country: US (occurrence: US)
  Receive Date: 20210315
  Receipt Date: 20210324
  Transmission Date: 20210420
  Serious: No
  Sender: FDA-Public Use
  Company Number: US-AMGEN-USASP2021036203

PATIENT
  Age: 63 Year
  Sex: Male

DRUGS (1)
  1. ENBREL [Suspect]
     Active Substance: ETANERCEPT
     Indication: PSORIATIC ARTHROPATHY
     Dosage: 50 MILLIGRAM, QWK
     Route: 065
     Dates: start: 202010

REACTIONS (4)
  - Injection site pruritus [Recovering/Resolving]
  - Injection site swelling [Recovering/Resolving]
  - Accidental exposure to product [Unknown]
  - Injection site erythema [Recovering/Resolving]

NARRATIVE: CASE EVENT DATE: 20210226
